FAERS Safety Report 9934888 (Version 1)
Quarter: 2014Q1

REPORT INFORMATION
  Report Type: Spontaneous
  Country: DE (occurrence: DE)
  Receive Date: 20140228
  Receipt Date: 20140228
  Transmission Date: 20141002
  Serious: Yes (Other)
  Sender: FDA-Public Use
  Company Number: DE-TEVA-463390GER

PATIENT
  Sex: Female

DRUGS (2)
  1. INDAPAMID-RATIOPHARM 1.5 MG RETARDTABLETTEN [Suspect]
     Indication: HYPERALDOSTERONISM
     Dates: start: 2011
  2. SPIRONOLACTON [Concomitant]
     Indication: HYPERALDOSTERONISM
     Dosage: 200 MILLIGRAM DAILY;
     Dates: start: 2011

REACTIONS (3)
  - Type III immune complex mediated reaction [Recovered/Resolved]
  - Skin reaction [Recovered/Resolved]
  - Urticaria [Recovered/Resolved]
